FAERS Safety Report 19965391 (Version 1)
Quarter: 2021Q4

REPORT INFORMATION
  Report Type: Spontaneous
  Country: DE (occurrence: DE)
  Receive Date: 20211018
  Receipt Date: 20211018
  Transmission Date: 20220303
  Serious: Yes (Other)
  Sender: FDA-Public Use
  Company Number: DE-NOVARTISPH-NVSC2021DE234019

PATIENT
  Age: 66 Year
  Sex: Female

DRUGS (12)
  1. DEXAMETHASONE [Suspect]
     Active Substance: DEXAMETHASONE
     Indication: Plasma cell myeloma
     Dosage: 20 MG (DATE OF THE LAST DOSAGE BEFORE EVENT ONSET 05-AUG-2018)
     Route: 065
     Dates: start: 20180801
  2. DEXAMETHASONE [Suspect]
     Active Substance: DEXAMETHASONE
     Dosage: UNK
     Route: 065
  3. DOXORUBICIN HYDROCHLORIDE [Suspect]
     Active Substance: DOXORUBICIN HYDROCHLORIDE
     Indication: Plasma cell myeloma
     Dosage: 16 MG (DATE OF THE LAST DOSAGE BEFORE EVENT ONSET 04-AUG-2018)
     Route: 065
     Dates: start: 20180801, end: 20180928
  4. REVLIMID [Suspect]
     Active Substance: LENALIDOMIDE
     Indication: Plasma cell myeloma
     Dosage: 25 MG (DATE OF THE LAST DOSAGE BEFORE EVENT ONSET 06-AUG-2018)
     Route: 065
     Dates: start: 20180801, end: 20180928
  5. VELCADE [Suspect]
     Active Substance: BORTEZOMIB
     Indication: Plasma cell myeloma
     Dosage: 1.8 MG (DATE OF THE LAST DOSAGE BEFORE EVENT ONSET ON 04-AUG-2018DOSE WAS 2.6 MG)
     Route: 065
     Dates: start: 20180801, end: 20180928
  6. ALLOPURINOL [Concomitant]
     Active Substance: ALLOPURINOL
     Indication: Product used for unknown indication
     Dosage: 150 MG
     Route: 048
     Dates: start: 20180806, end: 20180821
  7. PANTOPRAZOLE [Concomitant]
     Active Substance: PANTOPRAZOLE
     Indication: Product used for unknown indication
     Dosage: 40 MG
     Route: 048
     Dates: start: 20180806
  8. MCP [Concomitant]
     Active Substance: METOCLOPRAMIDE HYDROCHLORIDE
     Indication: Product used for unknown indication
     Dosage: 10 MG, PRN (AS REQUIRED)
     Route: 048
     Dates: start: 20180806, end: 20181012
  9. QUININE SULFATE [Concomitant]
     Active Substance: QUININE SULFATE
     Indication: Product used for unknown indication
     Dosage: 9999 MG, PRN (IF NECESSARY)
     Route: 048
     Dates: start: 20180918, end: 20181128
  10. CYANOCOBALAMIN [Concomitant]
     Active Substance: CYANOCOBALAMIN
     Indication: Product used for unknown indication
     Dosage: 1000 IU, QMO
     Route: 042
     Dates: start: 20210821
  11. AKYNZEO [Concomitant]
     Active Substance: NETUPITANT\PALONOSETRON HYDROCHLORIDE
     Indication: Product used for unknown indication
     Dosage: 9999 MG (PER CYCLE)
     Route: 048
     Dates: start: 20180806, end: 20181012
  12. LIPEGFILGRASTIM [Concomitant]
     Active Substance: LIPEGFILGRASTIM
     Indication: Product used for unknown indication
     Dosage: 6 MG
     Route: 058
     Dates: start: 20180821, end: 20181012

REACTIONS (1)
  - Thrombocytopenia [Recovered/Resolved]

NARRATIVE: CASE EVENT DATE: 20180807
